FAERS Safety Report 24146225 (Version 2)
Quarter: 2024Q3

REPORT INFORMATION
  Report Type: Spontaneous
  Country: US (occurrence: US)
  Receive Date: 20240729
  Receipt Date: 20240813
  Transmission Date: 20241017
  Serious: No
  Sender: LEO PHARM
  Company Number: US-LEO Pharma-372303

PATIENT
  Age: 60 Year
  Sex: Male

DRUGS (3)
  1. ADBRY [Suspect]
     Active Substance: TRALOKINUMAB-LDRM
     Indication: Dermatitis atopic
     Dosage: 4 INJECTIONS FOR THE LOADING DOSE ADMINISTERED AT THE DOCTORS OFFICE
     Dates: start: 20240722
  2. ADBRY [Suspect]
     Active Substance: TRALOKINUMAB-LDRM
     Indication: Dermatitis atopic
     Dosage: FIRST MAINTENANCE DOSE OF 2 INJECTIONS HE WAS TWO DAYS LATE.
     Dates: start: 20240807
  3. DUPIXENT [Suspect]
     Active Substance: DUPILUMAB
     Indication: Product used for unknown indication

REACTIONS (3)
  - Pain in extremity [Recovering/Resolving]
  - Rash [Recovered/Resolved]
  - Nail bed bleeding [Recovering/Resolving]
